FAERS Safety Report 6504440-6 (Version None)
Quarter: 2009Q4

REPORT INFORMATION
  Report Type: 
  Country: None (occurrence: None)
  Receive Date: 20091215
  Receipt Date: 20091204
  Transmission Date: 20100525
  Serious: Yes (Death, Hospitalization)
  Sender: FDA-Public Use
  Company Number: 2009AC000491

PATIENT
  Age: 62 Year
  Sex: Female

DRUGS (4)
  1. DIGOXIN [Suspect]
     Dosage: 0.25 MG;QD;PO
     Route: 048
     Dates: start: 20070101
  2. COREG [Concomitant]
  3. LISINOPRIL [Concomitant]
  4. ASPIRIN [Concomitant]

REACTIONS (9)
  - ANOXIC ENCEPHALOPATHY [None]
  - CARDIAC ARREST [None]
  - ECONOMIC PROBLEM [None]
  - HYPOTHYROIDISM [None]
  - MULTIPLE INJURIES [None]
  - RENAL FAILURE [None]
  - RESPIRATORY FAILURE [None]
  - SURGERY [None]
  - UNRESPONSIVE TO STIMULI [None]
